FAERS Safety Report 4705494-X (Version None)
Quarter: 2005Q3

REPORT INFORMATION
  Report Type: 
  Country: None (occurrence: None)
  Receive Date: 20050701
  Receipt Date: 20050622
  Transmission Date: 20060218
  Serious: Yes (Other)
  Sender: FDA-Public Use
  Company Number: PHBS2005BE09177

PATIENT
  Age: 45 Year
  Sex: Female
  Weight: 86 kg

DRUGS (2)
  1. BONDRONAT [Concomitant]
     Route: 065
     Dates: start: 20041020
  2. ZOMETA [Suspect]
     Indication: METASTASES TO BONE
     Dosage: 4 MG, QMO
     Route: 042
     Dates: start: 20021201, end: 20041006

REACTIONS (4)
  - ASEPTIC NECROSIS BONE [None]
  - METASTASES TO BONE [None]
  - PERIODONTITIS [None]
  - TOOTH EXTRACTION [None]
